FAERS Safety Report 5036226-6 (Version None)
Quarter: 2006Q2

REPORT INFORMATION
  Report Type: 
  Country: None (occurrence: None)
  Receive Date: 20060531
  Receipt Date: 20060313
  Transmission Date: 20061013
  Serious: Yes (Other)
  Sender: FDA-Public Use
  Company Number: PHEH2006US03393

PATIENT
  Age: 65 Year
  Sex: Male

DRUGS (7)
  1. EXJADE [Suspect]
     Indication: BLOOD IRON INCREASED
     Dosage: 2000 MG,QD,ORAL
     Route: 048
     Dates: start: 20060101
  2. TOPROL-XL [Concomitant]
  3. AMARYL [Concomitant]
  4. BUMEX [Concomitant]
  5. ALTACE [Concomitant]
  6. PRILOSEC [Concomitant]
  7. GLUCOPHAGE [Concomitant]

REACTIONS (2)
  - BLOOD CREATININE INCREASED [None]
  - BLOOD UREA INCREASED [None]
